FAERS Safety Report 15697387 (Version 1)
Quarter: 2018Q4

REPORT INFORMATION
  Report Type: Spontaneous
  Country: ES (occurrence: ES)
  Receive Date: 20181207
  Receipt Date: 20181207
  Transmission Date: 20190205
  Serious: Yes (Other)
  Sender: FDA-Public Use
  Company Number: ES-TEVA-2018-ES-982623

PATIENT
  Sex: Male

DRUGS (1)
  1. ETOPOSIDO (518A) [Suspect]
     Active Substance: ETOPOSIDE
     Dosage: SHOULD BE ADMINISTERED AT A RATE OF 660CC/H, AFTER 212 CCEL PATIENT BEGINS WITH THE SYMPTOMS
     Route: 065
     Dates: start: 201811

REACTIONS (7)
  - Cyanosis [Unknown]
  - Anxiety [Unknown]
  - Dizziness [Unknown]
  - Palpitations [Unknown]
  - Face oedema [Unknown]
  - Nausea [Unknown]
  - Chest discomfort [Unknown]

NARRATIVE: CASE EVENT DATE: 201811
